FAERS Safety Report 5060863-6 (Version None)
Quarter: 2006Q2

REPORT INFORMATION
  Report Type: 
  Country: None (occurrence: None)
  Receive Date: 20060630
  Receipt Date: 20050706
  Transmission Date: 20061013
  Serious: Yes (Hospitalization)
  Sender: FDA-Public Use
  Company Number: 410131

PATIENT
  Age: 75 Year
  Sex: Female
  Weight: 59.9 kg

DRUGS (2)
  1. CELLCEPT [Suspect]
     Indication: HAEMOLYTIC ANAEMIA
     Dosage: 500 MG 3 PER DAY ORAL
     Route: 048
     Dates: start: 20050515, end: 20050515
  2. COUMADIN [Concomitant]

REACTIONS (3)
  - ASTHENIA [None]
  - HAEMOGLOBIN DECREASED [None]
  - NAUSEA [None]
